FAERS Safety Report 23330903 (Version 1)
Quarter: 2023Q4

REPORT INFORMATION
  Report Type: Report from Study
  Country: US (occurrence: US)
  Receive Date: 20231222
  Receipt Date: 20231222
  Transmission Date: 20240110
  Serious: Yes (Other)
  Sender: FDA-Public Use
  Company Number: US-JNJFOC-20231244731

PATIENT

DRUGS (5)
  1. DARATUMUMAB [Suspect]
     Active Substance: DARATUMUMAB
     Indication: Plasma cell myeloma
     Dosage: ON DAYS 1, 8, 15, 22 EVERY 28 DAYS X 2 CYCLES; THEN ON DAYS 1, 15 EVERY 28 DAYS X 6 CYCLES AND EVERY
     Route: 042
  2. DARATUMUMAB [Suspect]
     Active Substance: DARATUMUMAB
     Indication: Plasma cell myeloma
     Dosage: ON DAYS 1, 8, 15, 22 EVERY 28 DAYS X 2 CYCLES; THEN ON DAYS 1, 15 EVERY 28 DAYS X 6 CYCLES AND EVERY
     Route: 058
  3. VELCADE [Suspect]
     Active Substance: BORTEZOMIB
     Indication: Plasma cell myeloma
     Dosage: ON DAYS 1, 4, 8 AND 11 EVERY 21 DAYS
     Route: 058
  4. IXAZOMIB [Suspect]
     Active Substance: IXAZOMIB
     Indication: Plasma cell myeloma
     Dosage: ON DAYS 1, 8, AND 15 EVERY 28 DAYS
     Route: 048
  5. DEXAMETHASONE [Suspect]
     Active Substance: DEXAMETHASONE
     Indication: Plasma cell myeloma
     Dosage: ON DAYS 1, 8, 15 AND 22 EVERY 28 DAYS
     Route: 048

REACTIONS (4)
  - Prostate cancer [Unknown]
  - Oesophageal adenocarcinoma [Unknown]
  - Neuropathy peripheral [Unknown]
  - Intentional product use issue [Unknown]
